FAERS Safety Report 4592609-X (Version None)
Quarter: 2005Q1

REPORT INFORMATION
  Report Type: 
  Country: None (occurrence: None)
  Receive Date: 20050218
  Receipt Date: 20050215
  Transmission Date: 20050727
  Serious: Yes (Life-Threatening)
  Sender: FDA-Public Use
  Company Number: 2005-125006-NL

PATIENT
  Age: 33 Year
  Sex: Male

DRUGS (2)
  1. MIRTAZAPINE [Suspect]
     Indication: DEPRESSION
     Dosage: 30 MG QD ORAL
     Route: 048
     Dates: start: 20041001
  2. OLANZAPINE [Suspect]
     Indication: AGITATION
     Dosage: 6 MG QD ORAL
     Route: 048
     Dates: start: 20041001, end: 20050209

REACTIONS (1)
  - PULMONARY EMBOLISM [None]
